FAERS Safety Report 5197692-9 (Version None)
Quarter: 2007Q1

REPORT INFORMATION
  Report Type: 
  Country: None (occurrence: None)
  Receive Date: 20070103
  Receipt Date: 20061225
  Transmission Date: 20070707
  Serious: Yes (Other)
  Sender: FDA-Public Use
  Company Number: JP-PFIZER INC-2007000127

PATIENT
  Age: 68 Year
  Sex: Male

DRUGS (2)
  1. LIPITOR [Suspect]
     Route: 048
     Dates: start: 20040601, end: 20040701
  2. DRUG, UNSPECIFIED [Suspect]

REACTIONS (1)
  - LIVER DISORDER [None]
